FAERS Safety Report 21175553 (Version 1)
Quarter: 2022Q3

REPORT INFORMATION
  Report Type: Spontaneous
  Country: FR (occurrence: FR)
  Receive Date: 20220805
  Receipt Date: 20220805
  Transmission Date: 20221027
  Serious: Yes (Hospitalization)
  Sender: FDA-Public Use
  Company Number: None

PATIENT
  Age: 11 Year
  Sex: Female
  Weight: 34 kg

DRUGS (5)
  1. VINCRISTINE SULFATE [Suspect]
     Active Substance: VINCRISTINE SULFATE
     Indication: Ewing-like sarcoma
     Dosage: 2MG TOTAL, VINCRISTINE (SULFATE DE), UNIT DOSE: 2 ML,, DURATION : 1 DAY, 1 FP
     Dates: start: 20220627, end: 20220627
  2. CYCLOPHOSPHAMIDE [Suspect]
     Active Substance: CYCLOPHOSPHAMIDE
     Indication: Ewing-like sarcoma
     Dosage: 1400ML IN TOTAL, UNIT DOSE: 1400 MG, DURATION : 1 DAY, 1 FP
     Dates: start: 20220627, end: 20220627
  3. EVUSHELD [Suspect]
     Active Substance: CILGAVIMAB\TIXAGEVIMAB
     Indication: COVID-19
     Dosage: DURATION : 1DAY, 1 FP
     Dates: start: 20220630, end: 20220630
  4. AMIKACIN [Suspect]
     Active Substance: AMIKACIN
     Indication: Febrile neutropenia
     Dosage: 650 MG IN TOTAL, DURATION : 1 DAY, 1 FP
     Dates: start: 20220627, end: 20220627
  5. PIPERACILLIN AND TAZOBACTAM [Suspect]
     Active Substance: PIPERACILLIN SODIUM\TAZOBACTAM SODIUM
     Indication: Febrile neutropenia
     Dosage: DURATION : 1 DAY, 1 FP
     Dates: start: 20220630, end: 20220701

REACTIONS (1)
  - Acute kidney injury [Recovered/Resolved]

NARRATIVE: CASE EVENT DATE: 20220701
